FAERS Safety Report 10701152 (Version 1)
Quarter: 2014Q4

REPORT INFORMATION
  Report Type: Spontaneous
  Country: US (occurrence: None)
  Receive Date: 20141229
  Receipt Date: 20141229
  Transmission Date: 20150529
  Serious: Yes (Other)
  Sender: FDA-Public Use
  Company Number: 2014AP003642

PATIENT

DRUGS (2)
  1. LEVOFLOXACIN. [Suspect]
     Active Substance: LEVOFLOXACIN
     Route: 048
  2. PYRAZINAMIDE (PYRAZINAMIDE) [Concomitant]
     Active Substance: PYRAZINAMIDE

REACTIONS (2)
  - Hallucination [None]
  - Sleep terror [None]
